FAERS Safety Report 17839392 (Version 1)
Quarter: 2020Q2

REPORT INFORMATION
  Report Type: Spontaneous
  Country: IT (occurrence: IT)
  Receive Date: 20200529
  Receipt Date: 20200529
  Transmission Date: 20200714
  Serious: Yes (Other)
  Sender: FDA-Public Use
  Company Number: IT-ASTRAZENECA-2020SE68293

PATIENT
  Sex: Male

DRUGS (1)
  1. IRESSA [Suspect]
     Active Substance: GEFITINIB
     Route: 048
     Dates: start: 201708, end: 201909

REACTIONS (5)
  - Eating disorder [Unknown]
  - Weight decreased [Unknown]
  - Epilepsy [Unknown]
  - Malignant neoplasm progression [Not Recovered/Not Resolved]
  - Facial paresis [Unknown]

NARRATIVE: CASE EVENT DATE: 201907
